FAERS Safety Report 8461231 (Version 3)
Quarter: 2013Q1

REPORT INFORMATION
  Report Type: Report from Study
  Country: DE (occurrence: DE)
  Receive Date: 20120315
  Receipt Date: 20130214
  Transmission Date: 20140127
  Serious: Yes (Hospitalization)
  Sender: FDA-Public Use
  Company Number: DE-JNJFOC-20101002413

PATIENT
  Age: 68 Year
  Sex: Male
  Weight: 79 kg

DRUGS (15)
  1. ABIRATERONE ACETATE [Suspect]
     Route: 048
  2. ABIRATERONE ACETATE [Suspect]
     Indication: PROSTATE CANCER METASTATIC
     Route: 048
     Dates: start: 20100318, end: 20101001
  3. PREDNISOLONE [Suspect]
     Indication: PROSTATE CANCER METASTATIC
     Route: 048
     Dates: start: 20100318
  4. HELIXOR [Concomitant]
     Indication: NEOPLASM PROPHYLAXIS
     Route: 058
     Dates: start: 20090813
  5. ZOMETA [Concomitant]
     Indication: METASTASES TO BONE
     Route: 042
     Dates: start: 200911
  6. CALCIUM [Concomitant]
     Indication: METASTASES TO BONE
     Route: 048
     Dates: start: 20100331
  7. FIRMAGON [Concomitant]
     Indication: HORMONE THERAPY
     Route: 058
     Dates: start: 20100318
  8. FIRMAGON [Concomitant]
     Indication: HORMONE THERAPY
     Route: 058
     Dates: start: 20091008
  9. FIRMAGON [Concomitant]
     Indication: PROSTATE CANCER
     Route: 058
     Dates: start: 20091008
  10. FIRMAGON [Concomitant]
     Indication: PROSTATE CANCER
     Route: 058
     Dates: start: 20100318
  11. BETAMETHASONE 17 VALERATE [Concomitant]
     Indication: STASIS DERMATITIS
     Route: 061
     Dates: start: 20100611
  12. NOVAMINSULFON [Concomitant]
     Indication: ABDOMINAL PAIN
     Route: 048
     Dates: start: 20100920
  13. NOVAMINSULFON [Concomitant]
     Indication: ABDOMINAL PAIN
     Route: 048
     Dates: start: 20100910, end: 20100920
  14. IBUPROFEN [Concomitant]
     Indication: CANCER PAIN
     Route: 048
     Dates: start: 20100928
  15. IBUPROFEN [Concomitant]
     Indication: CANCER PAIN
     Route: 048
     Dates: start: 20100925, end: 20100927

REACTIONS (1)
  - Hypoacusis [Recovered/Resolved]
